FAERS Safety Report 15686239 (Version 1)
Quarter: 2018Q4

REPORT INFORMATION
  Report Type: Spontaneous
  Country: US (occurrence: US)
  Receive Date: 20181121
  Receipt Date: 20181121
  Transmission Date: 20190205
  Serious: Yes (Hospitalization)
  Sender: FDA-Public Use
  Company Number: None

PATIENT
  Age: 62 Year
  Sex: Male

DRUGS (1)
  1. SULFAMETHOXAZOLE/TRIMETHOPRIM [Suspect]
     Active Substance: SULFAMETHOXAZOLE\TRIMETHOPRIM
     Indication: ABSCESS
     Dosage: ?          OTHER DOSE:1600-320 MG;?
     Route: 048
     Dates: start: 20181010, end: 20181020

REACTIONS (6)
  - Rash morbilliform [None]
  - Drug reaction with eosinophilia and systemic symptoms [None]
  - Blood urea increased [None]
  - Eosinophilia [None]
  - Face oedema [None]
  - Blood creatinine increased [None]

NARRATIVE: CASE EVENT DATE: 20181019
